FAERS Safety Report 14016011 (Version 1)
Quarter: 2017Q3

REPORT INFORMATION
  Report Type: Spontaneous
  Country: US (occurrence: US)
  Receive Date: 20170927
  Receipt Date: 20170927
  Transmission Date: 20171128
  Serious: No
  Sender: FDA-Public Use
  Company Number: US-DEPOMED, INC.-US-2017DEP000961

PATIENT

DRUGS (2)
  1. GRALISE [Suspect]
     Active Substance: GABAPENTIN
     Dosage: 1200 MG, QD
  2. GRALISE [Suspect]
     Active Substance: GABAPENTIN
     Indication: SCIATICA
     Dosage: 1800 MG, QD, AT NIGHT
     Route: 048
     Dates: start: 20160407

REACTIONS (2)
  - Drug titration error [Not Recovered/Not Resolved]
  - Somnolence [Recovering/Resolving]

NARRATIVE: CASE EVENT DATE: 20160410
